FAERS Safety Report 5326882-7 (Version None)
Quarter: 2007Q2

REPORT INFORMATION
  Report Type: 
  Country: None (occurrence: None)
  Receive Date: 20070511
  Receipt Date: 20070425
  Transmission Date: 20071010
  Serious: Yes (Death)
  Sender: FDA-Public Use
  Company Number: 8023628

PATIENT
  Age: 6 Year

DRUGS (2)
  1. KEPPRA [Suspect]
     Indication: STATUS EPILEPTICUS
     Dosage: IV
     Route: 042
  2. PHENYTOIN [Concomitant]

REACTIONS (1)
  - METABOLIC DISORDER [None]
